FAERS Safety Report 25561876 (Version 1)
Quarter: 2025Q3

REPORT INFORMATION
  Report Type: Spontaneous
  Country: GB (occurrence: GB)
  Receive Date: 20250716
  Receipt Date: 20250716
  Transmission Date: 20251021
  Serious: Yes (Hospitalization, Other)
  Sender: VIIV
  Company Number: None

PATIENT
  Age: 48 Year
  Sex: Male
  Weight: 69 kg

DRUGS (4)
  1. VOCABRIA [Suspect]
     Active Substance: CABOTEGRAVIR SODIUM
     Indication: Product used for unknown indication
     Dosage: 1 DF, Q8W (1 INJECTION OF LA-CAB/RIL EVERY 8 WEEKS (9TH MAY = FINAL DOSE))
     Route: 065
  2. VOCABRIA [Suspect]
     Active Substance: CABOTEGRAVIR SODIUM
  3. VOCABRIA [Suspect]
     Active Substance: CABOTEGRAVIR SODIUM
  4. RILPIVIRINE [Suspect]
     Active Substance: RILPIVIRINE
     Indication: Product used for unknown indication
     Dosage: 1 DF, Q8W (1 INJECTION OF LA-CAB/RILEVERY 8 WEEKS (9TH MAY = FINAL DOSE))
     Route: 065

REACTIONS (3)
  - Hepatitis B reactivation [Recovering/Resolving]
  - Jaundice [Recovering/Resolving]
  - Hypertransaminasaemia [Recovering/Resolving]

NARRATIVE: CASE EVENT DATE: 20250501
